FAERS Safety Report 5441599-6 (Version None)
Quarter: 2007Q3

REPORT INFORMATION
  Report Type: 
  Country: None (occurrence: None)
  Receive Date: 20070829
  Receipt Date: 20070820
  Transmission Date: 20080115
  Serious: No
  Sender: FDA-Public Use
  Company Number: 2007-163120-NL

PATIENT
  Age: 21 Year
  Sex: Female

DRUGS (1)
  1. ETONOGESTREL  (BATCH #: 817737/887282 [Suspect]
     Indication: CONTRACEPTION
     Dosage: DF SUBDERMAL
     Route: 059
     Dates: start: 20060808

REACTIONS (3)
  - DRUG EXPOSURE DURING PREGNANCY [None]
  - PREMATURE BABY [None]
  - UNINTENDED PREGNANCY [None]
